FAERS Safety Report 17993201 (Version 1)
Quarter: 2020Q3

REPORT INFORMATION
  Report Type: Report from Study
  Country: IT (occurrence: IT)
  Receive Date: 20200708
  Receipt Date: 20200708
  Transmission Date: 20201103
  Serious: Yes (Hospitalization)
  Sender: FDA-Public Use
  Company Number: IT-TEVA-2020-IT-1797963

PATIENT
  Age: 89 Year
  Sex: Female

DRUGS (7)
  1. TRADONAL [Suspect]
     Active Substance: TRAMADOL HYDROCHLORIDE
     Route: 065
     Dates: start: 20200101, end: 20200609
  2. METOPROLOL. [Concomitant]
     Active Substance: METOPROLOL
  3. OLANZAPINE. [Suspect]
     Active Substance: OLANZAPINE
     Route: 065
     Dates: start: 20200526, end: 20200605
  4. DELORAZEPAM [Suspect]
     Active Substance: DELORAZEPAM
     Route: 065
  5. NORAPRIL [Concomitant]
     Active Substance: RAMIPRIL
  6. MOTILEX 0,5 MG COMPRESSE [Concomitant]
  7. TACHIPIRINA [Concomitant]
     Active Substance: ACETAMINOPHEN

REACTIONS (1)
  - Sopor [Unknown]

NARRATIVE: CASE EVENT DATE: 20200609
